FAERS Safety Report 9148581 (Version 1)
Quarter: 2013Q1

REPORT INFORMATION
  Report Type: Spontaneous
  Country: IT (occurrence: None)
  Receive Date: 20130304
  Receipt Date: 20130304
  Transmission Date: 20140127
  Serious: Yes (Death)
  Sender: FDA-Public Use
  Company Number: 0212274

PATIENT
  Age: 77 Year
  Sex: Male

DRUGS (1)
  1. TACHOSIL [Suspect]
     Dates: start: 20091016

REACTIONS (1)
  - Cardiac arrest [None]
